FAERS Safety Report 14342810 (Version 1)
Quarter: 2017Q4

REPORT INFORMATION
  Report Type: Spontaneous
  Country: US (occurrence: US)
  Receive Date: 20171229
  Receipt Date: 20171229
  Transmission Date: 20180321
  Serious: Yes (Hospitalization)
  Sender: FDA-Public Use
  Company Number: None

PATIENT
  Age: 76 Year
  Sex: Female
  Weight: 101.4 kg

DRUGS (3)
  1. HEPARIN [Concomitant]
     Active Substance: HEPARIN SODIUM
  2. CEFTRIAXONE. [Suspect]
     Active Substance: CEFTRIAXONE
     Indication: URINARY TRACT INFECTION
     Route: 040
     Dates: start: 20171214, end: 20171214
  3. INSULIN LISPRO [Concomitant]
     Active Substance: INSULIN LISPRO

REACTIONS (7)
  - Hypoaesthesia [None]
  - Cardio-respiratory arrest [None]
  - Hypothermia [None]
  - Paraesthesia [None]
  - Bradyarrhythmia [None]
  - Pulseless electrical activity [None]
  - Dyspnoea [None]

NARRATIVE: CASE EVENT DATE: 20171214
